FAERS Safety Report 7082041-1 (Version None)
Quarter: 2010Q4

REPORT INFORMATION
  Report Type: 
  Country: None (occurrence: None)
  Receive Date: 20101103
  Receipt Date: 20101028
  Transmission Date: 20110411
  Serious: No
  Sender: FDA-Public Use
  Company Number: US-PFIZER INC-2010138090

PATIENT
  Sex: Female

DRUGS (5)
  1. LYRICA [Suspect]
     Dosage: UNK
  2. AMITRIPTYLINE [Suspect]
     Dosage: UNK
  3. BENADRYL [Suspect]
     Dosage: UNK
  4. ADVIL [Suspect]
     Dosage: UNK
  5. ALEVE (CAPLET) [Suspect]
     Dosage: UNK

REACTIONS (1)
  - DRUG INEFFECTIVE [None]
